FAERS Safety Report 5105143-5 (Version None)
Quarter: 2006Q3

REPORT INFORMATION
  Report Type: 
  Country: None (occurrence: None)
  Receive Date: 20060914
  Receipt Date: 20060619
  Transmission Date: 20061208
  Serious: Yes (Hospitalization)
  Sender: FDA-Public Use
  Company Number: AU-MERCK-0606AUS00114

PATIENT
  Age: 73 Year
  Sex: Male

DRUGS (4)
  1. FOSAMAX [Suspect]
     Indication: THORACIC VERTEBRAL FRACTURE
     Route: 048
     Dates: start: 20060521, end: 20060604
  2. ALLOPURINOL [Concomitant]
     Indication: GOUT
     Route: 048
  3. ASPIRIN [Concomitant]
     Indication: CEREBROVASCULAR ACCIDENT PROPHYLAXIS
     Route: 065
  4. FOSAMAX [Suspect]
     Indication: OSTEOPOROSIS
     Route: 048
     Dates: start: 20060521, end: 20060604

REACTIONS (3)
  - ABDOMINAL PAIN [None]
  - CHEST PAIN [None]
  - INTESTINAL PERFORATION [None]
